FAERS Safety Report 9835879 (Version 2)
Quarter: 2014Q1

REPORT INFORMATION
  Report Type: Spontaneous
  Country: GB (occurrence: GB)
  Receive Date: 20140122
  Receipt Date: 20140210
  Transmission Date: 20141002
  Serious: Yes (Death, Other)
  Sender: FDA-Public Use
  Company Number: PHFR2014GB000806

PATIENT
  Age: 44 Year
  Sex: Male

DRUGS (10)
  1. CLOZARIL [Suspect]
     Dosage: UNK
     Route: 048
     Dates: start: 20031007
  2. CLOZARIL [Suspect]
     Dosage: 125G MANE, 325 MG AT 9.30PM, 100 MG AT 10.30PM
  3. OLANZAPINE [Suspect]
     Dosage: UNK
  4. CHLORPROMAZINE [Suspect]
     Dosage: UNK
  5. SODIUM VALPROATE [Concomitant]
     Dosage: 300 MG, BID
  6. CITALOPRAM [Concomitant]
     Dosage: 20 MG, DAILY
  7. HYOSCINE HYDROBROMIDE [Concomitant]
     Dosage: UNK
  8. AMISULPRIDE [Concomitant]
     Dosage: 400 MG, BID
  9. DIAZEPAM [Concomitant]
     Dosage: 3 MG MANE AND 4 AMG NOCTE
  10. PEPTAC [Concomitant]
     Dosage: 100 ML, QD

REACTIONS (5)
  - Accidental overdose [Fatal]
  - Cardiac arrest [Unknown]
  - Convulsion [Unknown]
  - Expired drug administered [Unknown]
  - Somnolence [Unknown]
